FAERS Safety Report 7267946-0 (Version None)
Quarter: 2011Q1

REPORT INFORMATION
  Report Type: 
  Country: None (occurrence: None)
  Receive Date: 20110201
  Receipt Date: 20110128
  Transmission Date: 20110831
  Serious: Yes (Other)
  Sender: FDA-Public Use
  Company Number: US-ABBOTT-11P-163-0701590-00

PATIENT
  Age: 31 Year
  Sex: Female

DRUGS (4)
  1. HUMIRA [Suspect]
     Route: 058
     Dates: start: 20110110
  2. HUMIRA [Suspect]
     Indication: ANKYLOSING SPONDYLITIS
     Route: 058
     Dates: start: 20080101
  3. HUMIRA [Suspect]
     Route: 058
     Dates: start: 20100801, end: 20101201
  4. SYNTHROID [Concomitant]
     Indication: HYPOTHYROIDISM
     Route: 048
     Dates: start: 19960101

REACTIONS (6)
  - NASOPHARYNGITIS [None]
  - ECTOPIC PREGNANCY [None]
  - SNEEZING [None]
  - DRUG EXPOSURE BEFORE PREGNANCY [None]
  - NASAL CONGESTION [None]
  - OROPHARYNGEAL PAIN [None]
